FAERS Safety Report 11307440 (Version 1)
Quarter: 2015Q3

REPORT INFORMATION
  Report Type: Spontaneous
  Country: US (occurrence: US)
  Receive Date: 20150723
  Receipt Date: 20150723
  Transmission Date: 20151125
  Serious: No
  Sender: FDA-Public Use
  Company Number: US-ASTRAZENECA-2015SE68936

PATIENT
  Age: 60 Year
  Sex: Female

DRUGS (1)
  1. BYDUREON [Suspect]
     Active Substance: EXENATIDE
     Dosage: 2 MG, 4 COUNT, ONCE A WEEK
     Route: 065

REACTIONS (4)
  - Underdose [Unknown]
  - Product quality issue [Unknown]
  - Injection site pain [Unknown]
  - Intentional product misuse [Unknown]
